FAERS Safety Report 7466065-8 (Version None)
Quarter: 2011Q2

REPORT INFORMATION
  Report Type: 
  Country: None (occurrence: None)
  Receive Date: 20110509
  Receipt Date: 20100611
  Transmission Date: 20111010
  Serious: No
  Sender: FDA-Public Use
  Company Number: US-ALEXION-A201000677

PATIENT
  Sex: Male

DRUGS (7)
  1. PRILOSEC [Concomitant]
     Dosage: 20 MG, QD
     Route: 048
  2. FISH OIL [Concomitant]
     Dosage: UNK
  3. SOLIRIS [Suspect]
     Dosage: 900 MG, UNK
     Route: 042
     Dates: start: 20100611
  4. SOLIRIS [Suspect]
     Indication: PAROXYSMAL NOCTURNAL HAEMOGLOBINURIA
     Dosage: 600 MG, QW
     Route: 042
     Dates: start: 20100512, end: 20010601
  5. BACTRIM DS [Concomitant]
     Dosage: UNK
     Route: 048
  6. ZESTRIL [Concomitant]
     Indication: HYPERTENSION
     Dosage: 40 MG, QD
     Route: 048
  7. CARAFATE [Concomitant]
     Dosage: UNK
     Route: 048

REACTIONS (1)
  - MEDICAL DEVICE COMPLICATION [None]
